FAERS Safety Report 5810487-5 (Version None)
Quarter: 2008Q3

REPORT INFORMATION
  Report Type: 
  Country: None (occurrence: None)
  Receive Date: 20080715
  Receipt Date: 20080710
  Transmission Date: 20090109
  Serious: Yes (Other)
  Sender: FDA-Public Use
  Company Number: JP-ASTRAZENECA-2008AP05217

PATIENT
  Age: 79 Year
  Sex: Male

DRUGS (2)
  1. DIPRIVAN [Suspect]
     Indication: GENERAL ANAESTHESIA
     Dosage: DOSE UNKNOWN
     Route: 042
     Dates: start: 20070925, end: 20070925
  2. REMIFENTANIL HYDROCHLORIDE [Concomitant]
     Indication: GENERAL ANAESTHESIA
     Dosage: DOSE UNKNOWN
     Route: 065
     Dates: start: 20070925, end: 20070925

REACTIONS (2)
  - CARBON DIOXIDE INCREASED [None]
  - OPERATIVE HAEMORRHAGE [None]
